FAERS Safety Report 13028420 (Version 1)
Quarter: 2016Q4

REPORT INFORMATION
  Report Type: Spontaneous
  Country: US (occurrence: US)
  Receive Date: 20161214
  Receipt Date: 20161214
  Transmission Date: 20170207
  Serious: Yes (Hospitalization, Other)
  Sender: FDA-Public Use
  Company Number: US-ALEXION PHARMACEUTICALS INC.-A201609808

PATIENT
  Age: 75 Year
  Sex: Female

DRUGS (1)
  1. SOLIRIS [Suspect]
     Active Substance: ECULIZUMAB
     Indication: HAEMOLYTIC URAEMIC SYNDROME
     Dosage: 1500 MG, Q2W
     Route: 042
     Dates: start: 2010

REACTIONS (6)
  - Anuria [Recovered/Resolved]
  - Pyrexia [Recovered/Resolved]
  - Blood creatinine increased [Recovered/Resolved]
  - Haemolytic uraemic syndrome [Recovered/Resolved]
  - Condition aggravated [Recovered/Resolved]
  - Incorrect dose administered [Not Recovered/Not Resolved]

NARRATIVE: CASE EVENT DATE: 201611
